FAERS Safety Report 5153631-8 (Version None)
Quarter: 2006Q4

REPORT INFORMATION
  Report Type: 
  Country: None (occurrence: None)
  Receive Date: 20061114
  Receipt Date: 20061030
  Transmission Date: 20070319
  Serious: Yes (Other)
  Sender: FDA-Public Use
  Company Number: 2006-08-0625

PATIENT
  Age: 79 Year
  Sex: Male

DRUGS (1)
  1. INTRON A [Suspect]
     Indication: RENAL CANCER METASTATIC
     Dosage: 3 MIU;TIW;IM
     Route: 030
     Dates: start: 20050701, end: 20060807

REACTIONS (1)
  - MYELODYSPLASTIC SYNDROME [None]
